FAERS Safety Report 19398622 (Version 4)
Quarter: 2021Q3

REPORT INFORMATION
  Report Type: Spontaneous
  Country: JP (occurrence: JP)
  Receive Date: 20210610
  Receipt Date: 20210714
  Transmission Date: 20211014
  Serious: Yes (Hospitalization, Other)
  Sender: FDA-Public Use
  Company Number: JP-GLAXOSMITHKLINE-JP2021JPN121105

PATIENT
  Age: 5 Decade
  Sex: Female

DRUGS (3)
  1. BENLYSTA [Suspect]
     Active Substance: BELIMUMAB
     Indication: SYSTEMIC LUPUS ERYTHEMATOSUS
     Dosage: 200 MG
     Route: 058
     Dates: start: 20210120, end: 2021
  2. PREDONINE [Concomitant]
     Active Substance: PREDNISOLONE
     Dosage: UNK
     Route: 048
  3. BENLYSTA [Suspect]
     Active Substance: BELIMUMAB
     Dosage: UNK MG
     Route: 058
     Dates: start: 20210609

REACTIONS (2)
  - Condition aggravated [Recovering/Resolving]
  - Systemic lupus erythematosus [Recovering/Resolving]
